FAERS Safety Report 16933660 (Version 3)
Quarter: 2019Q4

REPORT INFORMATION
  Report Type: Report from Study
  Country: GR (occurrence: GR)
  Receive Date: 20191018
  Receipt Date: 20191031
  Transmission Date: 20200122
  Serious: Yes (Life-Threatening, Hospitalization, Disabling, Other)
  Sender: FDA-Public Use
  Company Number: GR-B.I. PHARMACEUTICALS,INC./RIDGEFIELD-2019-BI-107793

PATIENT
  Age: 66 Year
  Sex: Male
  Weight: 104 kg

DRUGS (7)
  1. METFORMIN [Concomitant]
     Active Substance: METFORMIN HYDROCHLORIDE
     Indication: PRODUCT USED FOR UNKNOWN INDICATION
     Route: 065
  2. FUROSEMIDE. [Concomitant]
     Active Substance: FUROSEMIDE
     Indication: PRODUCT USED FOR UNKNOWN INDICATION
     Route: 065
  3. PRADAXA [Suspect]
     Active Substance: DABIGATRAN ETEXILATE MESYLATE
     Indication: CEREBROVASCULAR ACCIDENT PROPHYLAXIS
     Route: 048
  4. PRADAXA [Suspect]
     Active Substance: DABIGATRAN ETEXILATE MESYLATE
     Indication: ATRIAL FIBRILLATION
  5. EPLERENONE. [Concomitant]
     Active Substance: EPLERENONE
     Indication: PRODUCT USED FOR UNKNOWN INDICATION
     Route: 065
  6. ENTRESTO [Concomitant]
     Active Substance: SACUBITRIL\VALSARTAN
     Indication: PRODUCT USED FOR UNKNOWN INDICATION
     Route: 065
  7. CARVEDILOL. [Concomitant]
     Active Substance: CARVEDILOL
     Indication: PRODUCT USED FOR UNKNOWN INDICATION
     Route: 065

REACTIONS (6)
  - Cerebral infarction [Recovered/Resolved with Sequelae]
  - Atrial fibrillation [Not Recovered/Not Resolved]
  - Drug ineffective [Recovered/Resolved with Sequelae]
  - Cardiac tamponade [Recovered/Resolved with Sequelae]
  - Renal failure [Recovered/Resolved with Sequelae]
  - Staphylococcal infection [Recovered/Resolved]
